FAERS Safety Report 4768654-8 (Version None)
Quarter: 2005Q3

REPORT INFORMATION
  Report Type: 
  Country: None (occurrence: None)
  Receive Date: 20050914
  Receipt Date: 20050831
  Transmission Date: 20060218
  Serious: Yes (Death, Hospitalization)
  Sender: FDA-Public Use
  Company Number: FR-AMGEN-UK148990

PATIENT
  Age: 58 Year
  Sex: Male

DRUGS (9)
  1. ARANESP [Suspect]
     Indication: RENAL FAILURE CHRONIC
     Route: 065
     Dates: start: 20050201, end: 20050510
  2. PROGRAF [Suspect]
     Route: 065
     Dates: start: 20040301, end: 20050510
  3. NEORAL [Suspect]
     Route: 065
     Dates: end: 20050301
  4. CELLCEPT [Suspect]
     Route: 065
     Dates: start: 20040301, end: 20040701
  5. TARDYFERON [Concomitant]
     Route: 065
  6. FORTUM [Concomitant]
     Route: 065
  7. LASILIX [Concomitant]
     Route: 065
  8. EPREX [Concomitant]
     Route: 065
     Dates: start: 20050510
  9. ALLOPURINOL [Concomitant]
     Route: 065
     Dates: start: 20050401

REACTIONS (12)
  - DEPRESSED LEVEL OF CONSCIOUSNESS [None]
  - DIARRHOEA [None]
  - HEPATITIS CHOLESTATIC [None]
  - HISTIOCYTOSIS HAEMATOPHAGIC [None]
  - HYPERTRIGLYCERIDAEMIA [None]
  - HYPOGLOBULINAEMIA [None]
  - INFECTION [None]
  - LYMPHOMA [None]
  - METABOLIC ACIDOSIS [None]
  - MICROCYTIC ANAEMIA [None]
  - MULTI-ORGAN FAILURE [None]
  - PYREXIA [None]
